FAERS Safety Report 7051100-1 (Version None)
Quarter: 2010Q4

REPORT INFORMATION
  Report Type: 
  Country: None (occurrence: None)
  Receive Date: 20101018
  Receipt Date: 20101018
  Transmission Date: 20110411
  Serious: Yes (Life-Threatening, Hospitalization, Other)
  Sender: FDA-Public Use
  Company Number: None

PATIENT
  Age: 31 Year
  Sex: Female
  Weight: 53.5244 kg

DRUGS (1)
  1. MINOCYCLINE [Suspect]
     Indication: ACNE
     Dosage: 100 MG ONCE A DAY 2 WEEKS ORALLY
     Route: 048
     Dates: start: 20100716, end: 20100730

REACTIONS (2)
  - DRUG TOXICITY [None]
  - HEPATITIS [None]
